FAERS Safety Report 19181343 (Version 1)
Quarter: 2021Q2

REPORT INFORMATION
  Report Type: Spontaneous
  Country: US (occurrence: US)
  Receive Date: 20210426
  Receipt Date: 20210426
  Transmission Date: 20210717
  Serious: Yes (Death, Other)
  Sender: FDA-Public Use
  Company Number: US-PFIZER INC-2021392588

PATIENT
  Age: 48 Year
  Sex: Female

DRUGS (3)
  1. EPINEPHRINE. [Suspect]
     Active Substance: EPINEPHRINE
     Indication: RESUSCITATION
  2. EPINEPHRINE. [Suspect]
     Active Substance: EPINEPHRINE
     Indication: HAEMOSTASIS
  3. EPINEPHRINE. [Suspect]
     Active Substance: EPINEPHRINE
     Indication: PAIN MANAGEMENT
     Dosage: UNK

REACTIONS (7)
  - Acute myocardial infarction [Fatal]
  - Fluid overload [Fatal]
  - Blood catecholamines increased [Fatal]
  - Vasospasm [Fatal]
  - Multiple organ dysfunction syndrome [Fatal]
  - Overdose [Fatal]
  - Arrhythmia [Fatal]
